FAERS Safety Report 7388956-9 (Version None)
Quarter: 2011Q2

REPORT INFORMATION
  Report Type: 
  Country: None (occurrence: None)
  Receive Date: 20110401
  Receipt Date: 20110328
  Transmission Date: 20111010
  Serious: Yes (Hospitalization)
  Sender: FDA-Public Use
  Company Number: DE-US-EMD SERONO, INC.-7044355

PATIENT
  Sex: Male
  Weight: 80 kg

DRUGS (5)
  1. REBIF [Suspect]
     Dates: start: 20100801
  2. REBIF [Suspect]
     Indication: MULTIPLE SCLEROSIS
     Dates: start: 20100301, end: 20100801
  3. PIPAMPERON [Concomitant]
     Indication: SLEEP DISORDER
  4. AMITRYPTYLIN [Concomitant]
  5. IBUPROFEN [Concomitant]

REACTIONS (4)
  - FAECAL INCONTINENCE [None]
  - MULTIPLE SCLEROSIS RELAPSE [None]
  - URINARY INCONTINENCE [None]
  - SENSORY DISTURBANCE [None]
